FAERS Safety Report 24917818 (Version 2)
Quarter: 2025Q1

REPORT INFORMATION
  Report Type: Spontaneous
  Country: SK (occurrence: SK)
  Receive Date: 20250203
  Receipt Date: 20250214
  Transmission Date: 20250409
  Serious: Yes (Other)
  Sender: AMGEN
  Company Number: SK-SANDOZ-SDZ2025SK003138

PATIENT
  Age: 85 Year
  Sex: Female

DRUGS (3)
  1. XGEVA [Suspect]
     Active Substance: DENOSUMAB
     Indication: Breast cancer
     Route: 065
     Dates: start: 202212
  2. KISQALI [Suspect]
     Active Substance: RIBOCICLIB
     Indication: Breast cancer
     Dosage: 400 MILLIGRAM, QD (FOR 21 CONSECUTIVE DAYS  )
     Route: 065
  3. LETROZOLE [Suspect]
     Active Substance: LETROZOLE
     Indication: Breast cancer
     Route: 065
     Dates: start: 202211

REACTIONS (2)
  - Neutropenia [Unknown]
  - Fatigue [Unknown]
